FAERS Safety Report 19403605 (Version 2)
Quarter: 2021Q3

REPORT INFORMATION
  Report Type: Spontaneous
  Country: JP (occurrence: JP)
  Receive Date: 20210611
  Receipt Date: 20210713
  Transmission Date: 20211014
  Serious: Yes (Hospitalization, Other)
  Sender: FDA-Public Use
  Company Number: NVSJ2021JP008629

PATIENT
  Age: 76 Year
  Sex: Male
  Weight: 69.4 kg

DRUGS (16)
  1. EDOXABAN [Concomitant]
     Active Substance: EDOXABAN TOSYLATE
     Indication: PRODUCT USED FOR UNKNOWN INDICATION
     Dosage: 30 MG
     Route: 065
     Dates: end: 2019
  2. EDOXABAN [Concomitant]
     Active Substance: EDOXABAN TOSYLATE
     Dosage: 15 MG
     Route: 065
     Dates: start: 2020
  3. ISOSORBIDE. [Concomitant]
     Active Substance: ISOSORBIDE
     Indication: PRODUCT USED FOR UNKNOWN INDICATION
     Dosage: 40 MG
     Route: 065
     Dates: start: 2019, end: 2019
  4. ENTRESTO [Suspect]
     Active Substance: SACUBITRIL\VALSARTAN
     Dosage: 200 MG
     Route: 048
     Dates: start: 20210225, end: 20210412
  5. AMLODIN [Concomitant]
     Active Substance: AMLODIPINE BESYLATE
     Indication: PRODUCT USED FOR UNKNOWN INDICATION
     Dosage: 5 MG
     Route: 065
     Dates: end: 2019
  6. ROSUVASTATIN. [Concomitant]
     Active Substance: ROSUVASTATIN
     Indication: PRODUCT USED FOR UNKNOWN INDICATION
     Dosage: 2.5 MG
     Route: 065
  7. DIOVAN [Suspect]
     Active Substance: VALSARTAN
     Dosage: 40 MG
     Route: 048
     Dates: start: 20201117, end: 202011
  8. ENTRESTO [Suspect]
     Active Substance: SACUBITRIL\VALSARTAN
     Dosage: 400 MG
     Route: 048
     Dates: start: 20210413
  9. BISOPROLOL [Concomitant]
     Active Substance: BISOPROLOL
     Indication: PRODUCT USED FOR UNKNOWN INDICATION
     Dosage: 1.25 MG
     Route: 062
     Dates: start: 2019, end: 2019
  10. BISOPROLOL [Concomitant]
     Active Substance: BISOPROLOL
     Dosage: 1.25 MG
     Route: 062
     Dates: start: 2020
  11. ISOSORBIDE. [Concomitant]
     Active Substance: ISOSORBIDE
     Dosage: 40 MG
     Route: 065
     Dates: start: 2020
  12. DIOVAN [Suspect]
     Active Substance: VALSARTAN
     Indication: HYPERTENSION
     Dosage: 40 MG
     Route: 048
     Dates: end: 201911
  13. TORASEMIDE [Concomitant]
     Active Substance: TORSEMIDE
     Dosage: 4 MG
     Route: 065
     Dates: start: 2020
  14. ENTRESTO [Suspect]
     Active Substance: SACUBITRIL\VALSARTAN
     Indication: CARDIAC FAILURE
     Dosage: 100 MG
     Route: 048
     Dates: start: 20201201, end: 20210224
  15. BENZBROMARONE [Concomitant]
     Active Substance: BENZBROMARONE
     Indication: PRODUCT USED FOR UNKNOWN INDICATION
     Dosage: 25 MG
     Route: 065
  16. TORASEMIDE [Concomitant]
     Active Substance: TORSEMIDE
     Indication: PRODUCT USED FOR UNKNOWN INDICATION
     Dosage: 4 MG
     Route: 065
     Dates: start: 2019

REACTIONS (14)
  - Anaemia [Recovering/Resolving]
  - Dyspnoea at rest [Unknown]
  - Sleep apnoea syndrome [Unknown]
  - Melaena [Unknown]
  - Dyspnoea [Unknown]
  - Coordination abnormal [Unknown]
  - Coronary artery occlusion [Unknown]
  - Cheyne-Stokes respiration [Unknown]
  - Right ventricular hypertrophy [Unknown]
  - Colon cancer [Unknown]
  - Myocardial ischaemia [Unknown]
  - Ventricular hypokinesia [Unknown]
  - Coronary artery disease [Unknown]
  - Defect conduction intraventricular [Unknown]

NARRATIVE: CASE EVENT DATE: 201808
